FAERS Safety Report 9410346 (Version 1)
Quarter: 2013Q3

REPORT INFORMATION
  Report Type: Spontaneous
  Country: US (occurrence: US)
  Receive Date: 20130719
  Receipt Date: 20130719
  Transmission Date: 20140515
  Serious: Yes (Other)
  Sender: FDA-Public Use
  Company Number: US-ROCHE-1250641

PATIENT
  Sex: Female

DRUGS (3)
  1. PERJETA [Suspect]
     Indication: PRODUCT USED FOR UNKNOWN INDICATION
     Route: 065
  2. HERCEPTIN [Suspect]
     Indication: PRODUCT USED FOR UNKNOWN INDICATION
     Route: 065
  3. TAXOTERE [Concomitant]

REACTIONS (4)
  - Dyspnoea [Unknown]
  - Lung neoplasm malignant [Unknown]
  - Cough [Unknown]
  - Hepatic cancer [Unknown]
